FAERS Safety Report 7575291 (Version 6)
Quarter: 2013Q1

REPORT INFORMATION
  Report Type: Spontaneous
  Country: GB (occurrence: GB)
  Receive Date: 20100907
  Receipt Date: 20130329
  Transmission Date: 20140127
  Serious: Yes (Life-Threatening, Other)
  Sender: FDA-Public Use
  Company Number: GB-BRISTOL-MYERS SQUIBB COMPANY-15268303

PATIENT
  Age: 19 Year
  Sex: Female

DRUGS (15)
  1. ETOPOPHOS [Suspect]
     Route: 042
     Dates: start: 20070915, end: 20070915
  2. PARACETAMOL [Suspect]
     Route: 042
  3. MORPHINE SULPHATE [Suspect]
     Route: 042
  4. ACICLOVIR [Suspect]
  5. ALLOPURINOL [Suspect]
     Route: 048
  6. CASPOFUNGIN ACETATE [Suspect]
     Route: 042
  7. CHLORPHENAMINE [Suspect]
     Route: 042
  8. CICLOSPORIN [Suspect]
  9. KETALAR [Suspect]
     Indication: PAIN
     Route: 042
     Dates: start: 20070921, end: 20070928
  10. NORETHISTERONE [Suspect]
     Route: 048
  11. OMEPRAZOLE [Suspect]
  12. ONDANSETRON [Suspect]
     Dosage: ALSO TAKEN 6 MG OD
     Route: 042
  13. TAZOCIN [Suspect]
     Route: 042
  14. VORICONAZOLE [Suspect]
     Route: 048
  15. TOTAL PARENTERAL NUTRITION [Concomitant]

REACTIONS (7)
  - Dilatation intrahepatic duct acquired [Unknown]
  - Hepatotoxicity [Unknown]
  - Venoocclusive liver disease [Not Recovered/Not Resolved]
  - Bone marrow transplant [None]
  - Blood bilirubin increased [None]
  - Blood alkaline phosphatase increased [None]
  - Alanine aminotransferase increased [None]
